FAERS Safety Report 17292864 (Version 1)
Quarter: 2020Q1

REPORT INFORMATION
  Report Type: Report from Study
  Country: None (occurrence: US)
  Receive Date: 20200121
  Receipt Date: 20200121
  Transmission Date: 20200409
  Serious: Yes (Hospitalization, Other)
  Sender: FDA-Public Use
  Company Number: US-ABBVIE-18K-163-2531880-00

PATIENT
  Age: 74 Year
  Sex: Female
  Weight: 61.29 kg

DRUGS (1)
  1. HUMIRA [Suspect]
     Active Substance: ADALIMUMAB
     Indication: CROHN^S DISEASE
     Route: 058
     Dates: start: 20160830

REACTIONS (9)
  - Diverticulitis [Recovering/Resolving]
  - Diverticulitis [Unknown]
  - Eczema [Recovered/Resolved]
  - Headache [Unknown]
  - Feeling cold [Unknown]
  - Stress [Unknown]
  - Fungal skin infection [Recovered/Resolved]
  - Intestinal stenosis [Unknown]
  - Gastrointestinal inflammation [Unknown]

NARRATIVE: CASE EVENT DATE: 2016
